FAERS Safety Report 25272487 (Version 2)
Quarter: 2025Q2

REPORT INFORMATION
  Report Type: Spontaneous
  Country: PL (occurrence: PL)
  Receive Date: 20250506
  Receipt Date: 20250626
  Transmission Date: 20250716
  Serious: Yes (Hospitalization, Disabling, Other)
  Sender: BAUSCH AND LOMB
  Company Number: PL-AUROBINDO-AUR-APL-2025-021860

PATIENT
  Age: 70 Year
  Sex: Female

DRUGS (7)
  1. ACYCLOVIR [Suspect]
     Active Substance: ACYCLOVIR
     Indication: Varicella zoster virus infection
     Route: 042
  2. ACYCLOVIR [Suspect]
     Active Substance: ACYCLOVIR
     Indication: Ophthalmic herpes zoster
     Route: 065
  3. ATORVASTATIN [Suspect]
     Active Substance: ATORVASTATIN
     Indication: Hypercholesterolaemia
     Dosage: 40 MILLIGRAM, ONCE A DAY
     Route: 065
  4. ATORVASTATIN [Suspect]
     Active Substance: ATORVASTATIN
     Indication: Type 2 diabetes mellitus
  5. METFORMIN [Concomitant]
     Active Substance: METFORMIN HYDROCHLORIDE
     Indication: Type 2 diabetes mellitus
     Dosage: 2 GRAM, ONCE A DAY
     Route: 065
  6. METFORMIN [Concomitant]
     Active Substance: METFORMIN HYDROCHLORIDE
     Indication: Hypercholesterolaemia
  7. ACETAMINOPHEN\TRAMADOL [Concomitant]
     Active Substance: ACETAMINOPHEN\TRAMADOL
     Indication: Pain
     Dosage: UNK, 3 TIMES A DAY [37.5 MG/325 MG - 3 TIMES DAILY]
     Route: 065

REACTIONS (7)
  - Ophthalmic herpes zoster [Recovered/Resolved with Sequelae]
  - Drug abuse [Unknown]
  - Retinitis [Recovered/Resolved with Sequelae]
  - Uveitis [Recovered/Resolved with Sequelae]
  - Necrotising retinitis [Recovered/Resolved with Sequelae]
  - Post herpetic neuralgia [Unknown]
  - Conjunctivitis [Recovered/Resolved with Sequelae]
